FAERS Safety Report 8174328-6 (Version None)
Quarter: 2012Q1

REPORT INFORMATION
  Report Type: 
  Country: None (occurrence: None)
  Receive Date: 20120229
  Receipt Date: 20120221
  Transmission Date: 20120608
  Serious: Yes (Hospitalization)
  Sender: FDA-Public Use
  Company Number: US-BAYER-2011-049343

PATIENT
  Age: 27 Year
  Sex: Female
  Weight: 95.238 kg

DRUGS (8)
  1. XANAX [Concomitant]
     Indication: ANXIETY
     Dosage: UNK
     Dates: start: 20090701
  2. DILAUDID [Concomitant]
     Indication: BACK PAIN
     Dosage: UNK
     Dates: start: 20090701
  3. YAZ [Suspect]
     Indication: PREMENSTRUAL SYNDROME
  4. MORPHINE [Concomitant]
     Indication: BACK PAIN
     Dosage: UNK
     Dates: start: 20090714
  5. YASMIN [Suspect]
     Indication: ACNE
     Dosage: UNK
     Dates: start: 20060601, end: 20060801
  6. TEMAZEPAM [Concomitant]
     Indication: INSOMNIA
     Dosage: UNK
     Dates: start: 20081024, end: 20090902
  7. YAZ [Suspect]
     Indication: ACNE
     Dosage: UNK
     Dates: start: 20090621, end: 20090714
  8. YASMIN [Suspect]
     Indication: PREMENSTRUAL SYNDROME

REACTIONS (13)
  - PULMONARY EMBOLISM [None]
  - PAIN [None]
  - ANXIETY [None]
  - GENERAL PHYSICAL HEALTH DETERIORATION [None]
  - PULMONARY INFARCTION [None]
  - DYSPNOEA [None]
  - TOTAL LUNG CAPACITY DECREASED [None]
  - EMOTIONAL DISTRESS [None]
  - FATIGUE [None]
  - COAGULOPATHY [None]
  - DEPRESSION [None]
  - FEAR OF DISEASE [None]
  - MUSCULOSKELETAL DISCOMFORT [None]
